FAERS Safety Report 14387449 (Version 1)
Quarter: 2018Q1

REPORT INFORMATION
  Report Type: Spontaneous
  Country: US (occurrence: US)
  Receive Date: 20180115
  Receipt Date: 20180115
  Transmission Date: 20180509
  Serious: Yes (Other)
  Sender: FDA-Public Use
  Company Number: US-SA-2017SA195589

PATIENT
  Age: 65 Year
  Sex: Female

DRUGS (8)
  1. TAXOTERE [Suspect]
     Active Substance: DOCETAXEL
     Indication: BREAST CANCER FEMALE
     Route: 051
     Dates: start: 20140401, end: 20140401
  2. HERCEPTIN [Concomitant]
     Active Substance: TRASTUZUMAB
  3. TAXOTERE [Suspect]
     Active Substance: DOCETAXEL
     Indication: BREAST CANCER FEMALE
     Route: 051
     Dates: start: 20131119, end: 20131119
  4. PARAPLATIN [Concomitant]
     Active Substance: CARBOPLATIN
  5. NEOSAR [Concomitant]
     Active Substance: CYCLOPHOSPHAMIDE
  6. TREXALL [Concomitant]
     Active Substance: METHOTREXATE SODIUM
  7. PERTUZUMAB. [Concomitant]
     Active Substance: PERTUZUMAB
  8. 5-FU [Concomitant]
     Active Substance: FLUOROURACIL

REACTIONS (1)
  - Alopecia [Not Recovered/Not Resolved]

NARRATIVE: CASE EVENT DATE: 20141001
